FAERS Safety Report 5336260-2 (Version None)
Quarter: 2007Q2

REPORT INFORMATION
  Report Type: 
  Country: None (occurrence: None)
  Receive Date: 20070315
  Receipt Date: 20070131
  Transmission Date: 20071010
  Serious: No
  Sender: FDA-Public Use
  Company Number: BDI-009106

PATIENT
  Sex: Female

DRUGS (2)
  1. MULTIHANCE [Suspect]
     Indication: NUCLEAR MAGNETIC RESONANCE IMAGING
     Dosage: 20 ML ONCE IV
     Route: 042
     Dates: start: 20070131, end: 20070131
  2. MULTIHANCE [Suspect]
     Indication: SUBCLAVIAN STEAL SYNDROME
     Dosage: 20 ML ONCE IV
     Route: 042
     Dates: start: 20070131, end: 20070131

REACTIONS (2)
  - ERYTHEMA [None]
  - PRURITUS [None]
